FAERS Safety Report 15526478 (Version 2)
Quarter: 2018Q4

REPORT INFORMATION
  Report Type: Spontaneous
  Country: ZA (occurrence: ZA)
  Receive Date: 20181018
  Receipt Date: 20181024
  Transmission Date: 20190205
  Serious: Yes (Other)
  Sender: FDA-Public Use
  Company Number: ZA-PFIZER INC-2018418987

PATIENT
  Age: 82 Year
  Sex: Female

DRUGS (6)
  1. CARVETREND [Suspect]
     Active Substance: CARVEDILOL
     Dosage: 6.25 MG, UNK
  2. SANDOSTATIN [Suspect]
     Active Substance: OCTREOTIDE ACETATE
     Dosage: 20 MG, UNK
  3. MACRODANTIN [Suspect]
     Active Substance: NITROFURANTOIN
     Dosage: 100 MG, UNK
  4. FEDALOC [Suspect]
     Active Substance: NIFEDIPINE
     Dosage: 30 MG, UNK
  5. ASPAVOR [Suspect]
     Active Substance: ATORVASTATIN
     Dosage: 10 MG, UNK
  6. EPLEPTIN [Suspect]
     Active Substance: GABAPENTIN
     Dosage: 300 MG, UNK

REACTIONS (1)
  - Pneumonia [Recovered/Resolved]

NARRATIVE: CASE EVENT DATE: 201808
